FAERS Safety Report 12387680 (Version 4)
Quarter: 2017Q1

REPORT INFORMATION
  Report Type: Report from Study
  Country: DE (occurrence: DE)
  Receive Date: 20160520
  Receipt Date: 20170309
  Transmission Date: 20170428
  Serious: Yes (Hospitalization)
  Sender: FDA-Public Use
  Company Number: DE-ROCHE-1759740

PATIENT
  Age: 10 Year
  Sex: Male

DRUGS (3)
  1. SOMATROPIN [Suspect]
     Active Substance: SOMATROPIN
     Route: 058
     Dates: start: 2014
  2. SOMATROPIN [Suspect]
     Active Substance: SOMATROPIN
     Indication: GROWTH HORMONE DEFICIENCY
     Route: 058
     Dates: start: 201404, end: 20141022
  3. SOMATROPIN [Suspect]
     Active Substance: SOMATROPIN
     Indication: FAILURE TO THRIVE
     Dosage: 10 MG/2ML
     Route: 058
     Dates: start: 20140107, end: 201404

REACTIONS (2)
  - Intracranial pressure increased [Recovered/Resolved]
  - Cerebral cyst [Recovered/Resolved]

NARRATIVE: CASE EVENT DATE: 20141022
